FAERS Safety Report 11992547 (Version 1)
Quarter: 2016Q1

REPORT INFORMATION
  Report Type: Spontaneous
  Country: US (occurrence: US)
  Receive Date: 20160203
  Receipt Date: 20160203
  Transmission Date: 20160526
  Serious: No
  Sender: FDA-Public Use
  Company Number: US-UCBSA-2015008993

PATIENT
  Age: 62 Year
  Sex: Male

DRUGS (2)
  1. KEPPRA [Suspect]
     Active Substance: LEVETIRACETAM
     Indication: PRODUCT USED FOR UNKNOWN INDICATION
  2. TEMODAR [Concomitant]
     Active Substance: TEMOZOLOMIDE

REACTIONS (5)
  - Cough [Unknown]
  - Hypotonia [Unknown]
  - Oropharyngeal pain [Unknown]
  - Fatigue [Unknown]
  - Somnolence [Unknown]
